FAERS Safety Report 6715537-X (Version None)
Quarter: 2010Q2

REPORT INFORMATION
  Report Type: 
  Country: None (occurrence: None)
  Receive Date: 20100507
  Receipt Date: 20100427
  Transmission Date: 20101027
  Serious: Yes (Hospitalization)
  Sender: FDA-Public Use
  Company Number: CH-PFIZER INC-2010052897

PATIENT
  Age: 39 Year
  Sex: Female

DRUGS (3)
  1. SALAZOPYRIN [Suspect]
     Indication: ARTHROPATHY
     Dosage: UNK
     Route: 048
     Dates: start: 20100115, end: 20100209
  2. DAFALGAN [Suspect]
     Indication: ARTHROPATHY
     Dosage: 1 G, 4X/DAY
     Dates: start: 20100115, end: 20100209
  3. VOLTAREN [Suspect]
     Indication: ARTHROPATHY
     Dosage: UNK
     Route: 048
     Dates: start: 20100115, end: 20100209

REACTIONS (1)
  - TOXIC EPIDERMAL NECROLYSIS [None]
